FAERS Safety Report 8406647-X (Version None)
Quarter: 2012Q2

REPORT INFORMATION
  Report Type: 
  Country: None (occurrence: None)
  Receive Date: 20120604
  Receipt Date: 20111018
  Transmission Date: 20120825
  Serious: Yes (Hospitalization)
  Sender: FDA-Public Use
  Company Number: US-ASTELLAS-2011US005468

PATIENT
  Sex: Male
  Weight: 83 kg

DRUGS (6)
  1. ERLOTINIB HYDROCHLORIDE [Suspect]
     Indication: LUNG ADENOCARCINOMA
     Dosage: 150 MG, UID/QD
     Route: 048
     Dates: start: 20110419
  2. LORTAB [Concomitant]
     Indication: PAIN
     Dosage: 10/325, Q6 HOURS PRN
     Route: 065
  3. PHENERGAN [Concomitant]
     Indication: NAUSEA
     Dosage: 25 MG, Q6 HOURS
     Route: 065
  4. ESOMEPRAZOLE MAGNESIUM [Concomitant]
     Indication: PRODUCT USED FOR UNKNOWN INDICATION
     Dosage: 20 MG, UID/QD
     Route: 048
  5. MIRALAX [Concomitant]
     Indication: CONSTIPATION
     Dosage: 17 G, UID/QD PRN
     Route: 048
  6. PREDNISONE TAB [Concomitant]
     Indication: PRODUCT USED FOR UNKNOWN INDICATION
     Dosage: 50 MG, UID/QD
     Route: 065

REACTIONS (8)
  - CHRONIC RESPIRATORY FAILURE [None]
  - DRY SKIN [None]
  - CONSTIPATION [None]
  - DECREASED APPETITE [None]
  - HYPOXIA [None]
  - SKIN EXFOLIATION [None]
  - URINE OUTPUT DECREASED [None]
  - GAIT DISTURBANCE [None]
